FAERS Safety Report 23049585 (Version 1)
Quarter: 2023Q4

REPORT INFORMATION
  Report Type: Spontaneous
  Country: None (occurrence: FR)
  Receive Date: 20231010
  Receipt Date: 20231010
  Transmission Date: 20240110
  Serious: Yes (Death, Other)
  Sender: FDA-Public Use
  Company Number: FR-B.Braun Medical Inc.-2146895

PATIENT
  Age: 74 Year
  Sex: Female
  Weight: 93 kg

DRUGS (9)
  1. METRONIDAZOLE [Suspect]
     Active Substance: METRONIDAZOLE
     Indication: Pleurisy
     Route: 042
  2. LINEZOLID [Suspect]
     Active Substance: LINEZOLID
  3. CARVEDILOL [Concomitant]
     Active Substance: CARVEDILOL
  4. RIVAROXABAN [Concomitant]
     Active Substance: RIVAROXABAN
  5. POTASSIUM CHLORIDE [Concomitant]
     Active Substance: POTASSIUM CHLORIDE
  6. URSODIOL [Concomitant]
     Active Substance: URSODIOL
  7. EMPAGLIFLOZIN [Concomitant]
     Active Substance: EMPAGLIFLOZIN
  8. SPIRONOLACTONE [Concomitant]
     Active Substance: SPIRONOLACTONE
  9. FUROSEMIDE [Concomitant]
     Active Substance: FUROSEMIDE

REACTIONS (2)
  - Neutropenia [None]
  - Septic shock [None]
